FAERS Safety Report 6295407-4 (Version None)
Quarter: 2009Q3

REPORT INFORMATION
  Report Type: 
  Country: None (occurrence: None)
  Receive Date: 20090730
  Receipt Date: 20090717
  Transmission Date: 20100115
  Serious: Yes (Hospitalization)
  Sender: FDA-Public Use
  Company Number: 1000006041

PATIENT
  Age: 30 Year
  Sex: Female
  Weight: 157.5 kg

DRUGS (2)
  1. CERVIDIL [Suspect]
     Indication: LABOUR INDUCTION
     Dosage: 10 MG (10 MG, 1 IN 1 D), VAGINAL
     Route: 067
     Dates: start: 20090429, end: 20090429
  2. VITAMIN TAB [Concomitant]

REACTIONS (4)
  - CAESAREAN SECTION [None]
  - DRUG EXPOSURE DURING PREGNANCY [None]
  - UTERINE CONTRACTIONS ABNORMAL [None]
  - UTERINE HYPERTONUS [None]
